FAERS Safety Report 8192259-2 (Version None)
Quarter: 2012Q1

REPORT INFORMATION
  Report Type: 
  Country: None (occurrence: None)
  Receive Date: 20120307
  Receipt Date: 20120301
  Transmission Date: 20120608
  Serious: Yes (Hospitalization, Disabling, Other)
  Sender: FDA-Public Use
  Company Number: US-MERCK-1108USA00188

PATIENT
  Age: 58 Year
  Sex: Female
  Weight: 66 kg

DRUGS (5)
  1. FOSAMAX [Suspect]
     Indication: OSTEOPENIA
     Route: 048
     Dates: start: 20020101, end: 20100101
  2. ALENDRONATE SODIUM [Suspect]
     Route: 048
     Dates: start: 20090701
  3. VITAMIN D (UNSPECIFIED) [Concomitant]
     Route: 065
     Dates: start: 19800101
  4. ALENDRONATE SODIUM [Suspect]
     Route: 048
     Dates: start: 20100127, end: 20100201
  5. CALCIUM (UNSPECIFIED) [Concomitant]
     Route: 065
     Dates: start: 19800101

REACTIONS (28)
  - CONTUSION [None]
  - HYPERTENSION [None]
  - FALL [None]
  - DENTAL CARIES [None]
  - CONSTIPATION [None]
  - ROAD TRAFFIC ACCIDENT [None]
  - OSTEOPOROSIS [None]
  - POST PROCEDURAL HAEMORRHAGE [None]
  - TENDON DISORDER [None]
  - ARTHRALGIA [None]
  - LOW TURNOVER OSTEOPATHY [None]
  - COLONIC POLYP [None]
  - POOR PERSONAL HYGIENE [None]
  - HEAD INJURY [None]
  - LUMBAR RADICULOPATHY [None]
  - DERMATITIS [None]
  - SPINAL COLUMN STENOSIS [None]
  - STOMATITIS [None]
  - STRESS FRACTURE [None]
  - SPINAL OSTEOARTHRITIS [None]
  - HEADACHE [None]
  - GASTROINTESTINAL DISORDER [None]
  - ANXIETY [None]
  - HYPERLIPIDAEMIA [None]
  - FEMUR FRACTURE [None]
  - CAROTID ARTERY STENOSIS [None]
  - TOOTH DISORDER [None]
  - FAMILY STRESS [None]
